FAERS Safety Report 5685646-5 (Version None)
Quarter: 2008Q1

REPORT INFORMATION
  Report Type: 
  Country: None (occurrence: None)
  Receive Date: 20080328
  Receipt Date: 20070824
  Transmission Date: 20080703
  Serious: No
  Sender: FDA-Public Use
  Company Number: US-BAYER-US-2007-032159

PATIENT
  Age: 42 Year
  Sex: Female
  Weight: 78 kg

DRUGS (3)
  1. MIRENA [Suspect]
     Indication: CONTRACEPTION
     Route: 015
     Dates: start: 20060701
  2. AVALIDE [Concomitant]
     Route: 048
  3. AVAPRO [Concomitant]
     Route: 048

REACTIONS (1)
  - VAGINAL HAEMORRHAGE [None]
